FAERS Safety Report 10009072 (Version 2)
Quarter: 2014Q1

REPORT INFORMATION
  Report Type: Spontaneous
  Country: US (occurrence: US)
  Receive Date: 20140313
  Receipt Date: 20140313
  Transmission Date: 20141002
  Serious: No
  Sender: FDA-Public Use
  Company Number: US-INCYTE CORPORATION-2012IN001114

PATIENT
  Sex: Female
  Weight: 132 kg

DRUGS (1)
  1. JAKAFI [Suspect]
     Indication: MYELOPROLIFERATIVE DISORDER
     Dosage: 20 MG, BID
     Route: 048
     Dates: start: 20120131, end: 20120601

REACTIONS (2)
  - Fatigue [Recovered/Resolved]
  - Thinking abnormal [Recovered/Resolved]
